FAERS Safety Report 7135185-X (Version None)
Quarter: 2010Q4

REPORT INFORMATION
  Report Type: 
  Country: None (occurrence: None)
  Receive Date: 20101203
  Receipt Date: 20101124
  Transmission Date: 20110411
  Serious: Yes (Other)
  Sender: FDA-Public Use
  Company Number: US-PFIZER INC-2010129996

PATIENT
  Age: 37 Year
  Sex: Male
  Weight: 81.179 kg

DRUGS (4)
  1. LYRICA [Suspect]
     Indication: FIBROMYALGIA
     Dosage: 50 MG, 3X/DAY
     Dates: start: 20101004, end: 20101010
  2. LYRICA [Suspect]
     Indication: HEADACHE
  3. LYRICA [Suspect]
     Indication: NECK PAIN
  4. LYRICA [Suspect]
     Indication: BACK PAIN

REACTIONS (2)
  - FACE OEDEMA [None]
  - RASH [None]
